FAERS Safety Report 4426443-8 (Version None)
Quarter: 2004Q3

REPORT INFORMATION
  Report Type: 
  Country: None (occurrence: None)
  Receive Date: 20040815
  Receipt Date: 20040809
  Transmission Date: 20050211
  Serious: Yes (Other)
  Sender: FDA-Public Use
  Company Number: US-MERCK-0408USA00874

PATIENT
  Sex: Female

DRUGS (3)
  1. EMEND [Suspect]
     Route: 048
  2. CYTOXAN [Concomitant]
     Route: 065
  3. ADRIAMYCIN PFS [Concomitant]
     Route: 065

REACTIONS (2)
  - CONVULSION [None]
  - HYPONATRAEMIA [None]
